FAERS Safety Report 7679728-6 (Version None)
Quarter: 2011Q3

REPORT INFORMATION
  Report Type: 
  Country: None (occurrence: None)
  Receive Date: 20110812
  Receipt Date: 20110805
  Transmission Date: 20111222
  Serious: Yes (Hospitalization, Other)
  Sender: FDA-Public Use
  Company Number: US-JNJFOC-20110804182

PATIENT
  Sex: Male
  Weight: 99.79 kg

DRUGS (10)
  1. NORCO [Concomitant]
     Indication: PAIN
     Route: 048
     Dates: start: 20000101
  2. NEURONTIN [Concomitant]
     Indication: PAIN
     Route: 048
  3. PHENERGAN HCL [Concomitant]
     Indication: PRODUCT USED FOR UNKNOWN INDICATION
     Route: 048
  4. DURAGESIC-100 [Suspect]
     Indication: BACK DISORDER
     Route: 062
     Dates: start: 20000101
  5. VALIUM [Concomitant]
     Indication: PAIN
     Route: 048
     Dates: start: 20000101
  6. TRAZODONE HCL [Concomitant]
     Indication: PAIN
     Route: 048
     Dates: start: 20000101
  7. IMITREX [Concomitant]
     Indication: PRODUCT USED FOR UNKNOWN INDICATION
     Route: 048
  8. DILAUDID [Concomitant]
     Indication: PAIN
     Route: 048
     Dates: start: 20000101
  9. SOMA [Concomitant]
     Indication: PAIN
     Route: 048
  10. CELEBREX [Concomitant]
     Indication: PAIN
     Route: 048

REACTIONS (5)
  - WRONG TECHNIQUE IN DRUG USAGE PROCESS [None]
  - DRUG INEFFECTIVE [None]
  - CHILLS [None]
  - HYPERHIDROSIS [None]
  - PYREXIA [None]
